FAERS Safety Report 4455709-0 (Version None)
Quarter: 2004Q3

REPORT INFORMATION
  Report Type: 
  Country: None (occurrence: None)
  Receive Date: 20040917
  Receipt Date: 20040906
  Transmission Date: 20050211
  Serious: No
  Sender: FDA-Public Use
  Company Number: 04P-167-0272647-00

PATIENT
  Age: 77 Year
  Sex: Female
  Weight: 70 kg

DRUGS (13)
  1. HUMIRA [Suspect]
     Indication: RHEUMATOID ARTHRITIS
     Dosage: 40 MG, 1 IN 2 WK
     Dates: start: 20040517, end: 20040902
  2. ACETAMINOPHEN W/ CODEINE [Concomitant]
  3. ACENOCOUMAROL [Concomitant]
  4. DIGOXIN [Concomitant]
  5. FUROSEMIDE [Concomitant]
  6. DOSULEPIN [Concomitant]
  7. DIAZEPAM [Concomitant]
  8. METFORMIN HCL [Concomitant]
  9. CALCIUM CARBONATE [Concomitant]
  10. METHOTREXATE [Concomitant]
  11. FOLIC ACID [Concomitant]
  12. INSULIN INJECTION, BIPHASIC [Concomitant]
  13. HUMIRA (COMMERCIAL) [Concomitant]

REACTIONS (7)
  - DYSPHAGIA [None]
  - EAR PAIN [None]
  - GRANULOMA [None]
  - ODYNOPHAGIA [None]
  - PHARYNGEAL ULCERATION [None]
  - PHARYNGITIS [None]
  - TUBERCULOSIS [None]
